FAERS Safety Report 16881751 (Version 1)
Quarter: 2019Q4

REPORT INFORMATION
  Report Type: Spontaneous
  Country: US (occurrence: US)
  Receive Date: 20191003
  Receipt Date: 20191003
  Transmission Date: 20200122
  Serious: No
  Sender: FDA-Public Use
  Company Number: US-LEXICON PHARMACEUTICALS, INC-19-1606-00895

PATIENT
  Sex: Female

DRUGS (5)
  1. TELOTRISTAT ETHYL [Suspect]
     Active Substance: TELOTRISTAT ETHYL
     Indication: DIARRHOEA
     Dates: start: 20190824
  2. TELOTRISTAT ETHYL [Suspect]
     Active Substance: TELOTRISTAT ETHYL
     Indication: NEUROENDOCRINE TUMOUR
  3. LOSARTAN POT [Concomitant]
     Active Substance: LOSARTAN POTASSIUM
  4. KLONOPIN [Concomitant]
     Active Substance: CLONAZEPAM
  5. LEVOTHYROXIN [Concomitant]
     Active Substance: LEVOTHYROXINE

REACTIONS (5)
  - Pruritus [Unknown]
  - Nausea [Unknown]
  - Dyspnoea [Unknown]
  - Anxiety [Unknown]
  - Insomnia [Unknown]
